FAERS Safety Report 18279114 (Version 4)
Quarter: 2020Q4

REPORT INFORMATION
  Report Type: Spontaneous
  Country: US (occurrence: US)
  Receive Date: 20200917
  Receipt Date: 20201014
  Transmission Date: 20210113
  Serious: No
  Sender: FDA-Public Use
  Company Number: US-BIOGEN-2020BI00923483

PATIENT
  Age: 56 Year
  Sex: Female

DRUGS (5)
  1. AVONEX PEN [Suspect]
     Active Substance: INTERFERON BETA-1A
  2. AVONEX PEN [Suspect]
     Active Substance: INTERFERON BETA-1A
  3. AVONEX PEN [Suspect]
     Active Substance: INTERFERON BETA-1A
     Indication: MULTIPLE SCLEROSIS
     Route: 030
     Dates: start: 20200904
  4. AVONEX PEN [Suspect]
     Active Substance: INTERFERON BETA-1A
     Dosage: INJECT 1 PREFILLED PEN INTRAMUSCULARLY ONCE WEEKLY
     Route: 030
     Dates: start: 2020
  5. TRAZODONE HYDROCHLORIDE. [Concomitant]
     Active Substance: TRAZODONE HYDROCHLORIDE
     Route: 065

REACTIONS (8)
  - Drug ineffective [Unknown]
  - Product dispensing error [Not Recovered/Not Resolved]
  - Gait inability [Recovered/Resolved]
  - Visual impairment [Recovered/Resolved]
  - Injection site pain [Not Recovered/Not Resolved]
  - Eyelid function disorder [Recovered/Resolved]
  - Migraine [Recovered/Resolved]
  - Loss of consciousness [Unknown]

NARRATIVE: CASE EVENT DATE: 20200904
